FAERS Safety Report 10934284 (Version 1)
Quarter: 2015Q1

REPORT INFORMATION
  Report Type: Report from Study
  Country: US (occurrence: US)
  Receive Date: 20150320
  Receipt Date: 20150320
  Transmission Date: 20150721
  Serious: Yes (Death)
  Sender: FDA-Public Use
  Company Number: US-SA-2015SA033131

PATIENT
  Sex: Male

DRUGS (1)
  1. LOVENOX [Suspect]
     Active Substance: ENOXAPARIN SODIUM
     Indication: CARDIOVASCULAR EVENT PROPHYLAXIS
     Route: 065

REACTIONS (1)
  - Death [Fatal]
